FAERS Safety Report 5181340-8 (Version None)
Quarter: 2006Q4

REPORT INFORMATION
  Report Type: 
  Country: None (occurrence: None)
  Receive Date: 20061220
  Receipt Date: 20051220
  Transmission Date: 20070319
  Serious: Yes (Other)
  Sender: FDA-Public Use
  Company Number: US-GLAXOSMITHKLINE-A0586408A

PATIENT
  Age: 61 Year
  Sex: Male

DRUGS (1)
  1. COMMIT [Suspect]
     Dosage: 4MG SEE DOSAGE TEXT

REACTIONS (1)
  - DRUG ABUSER [None]
